FAERS Safety Report 20301235 (Version 2)
Quarter: 2022Q1

REPORT INFORMATION
  Report Type: Report from Study
  Country: VN (occurrence: VN)
  Receive Date: 20220105
  Receipt Date: 20220110
  Transmission Date: 20220423
  Serious: Yes (Other)
  Sender: FDA-Public Use
  Company Number: VN-NOVARTISPH-NVSC2021VN301551

PATIENT
  Age: 25 Year
  Sex: Female

DRUGS (1)
  1. METHOTREXATE [Suspect]
     Active Substance: METHOTREXATE
     Indication: Product use in unapproved indication
     Dosage: UNK
     Route: 048
     Dates: start: 201304, end: 201503

REACTIONS (1)
  - Ankylosing spondylitis [Recovering/Resolving]

NARRATIVE: CASE EVENT DATE: 20130401
